FAERS Safety Report 19300979 (Version 3)
Quarter: 2021Q3

REPORT INFORMATION
  Report Type: Spontaneous
  Country: US (occurrence: US)
  Receive Date: 20210525
  Receipt Date: 20210921
  Transmission Date: 20211014
  Serious: Yes (Hospitalization, Other)
  Sender: FDA-Public Use
  Company Number: US-BEH-2021131759

PATIENT
  Sex: Male

DRUGS (5)
  1. IDELVION [Suspect]
     Active Substance: COAGULATION FACTOR IX RECOMBINANT HUMAN
     Indication: PROPHYLAXIS
     Dosage: 10000 INTERNATIONAL UNIT (+/? 10% (DOSE: 3851X2+2035=9737)
     Route: 042
  2. IDELVION [Suspect]
     Active Substance: COAGULATION FACTOR IX RECOMBINANT HUMAN
     Indication: PROPHYLAXIS
     Dosage: 10000 INTERNATIONAL UNIT (+/? 10% (DOSE: 3851X2+2035=9737)
     Route: 042
  3. IDELVION [Suspect]
     Active Substance: COAGULATION FACTOR IX RECOMBINANT HUMAN
     Indication: FACTOR IX DEFICIENCY
     Dosage: 10000 INTERNATIONAL UNIT (10% DOSE = 3897+2097=9891
     Route: 042
     Dates: start: 202101
  4. IDELVION [Suspect]
     Active Substance: COAGULATION FACTOR IX RECOMBINANT HUMAN
     Indication: FACTOR IX DEFICIENCY
     Dosage: 10000 INTERNATIONAL UNIT (10% DOSE = 3897+2097=9891
     Route: 042
     Dates: start: 202101
  5. MULTIVITAMIN [ASCORBIC ACID;CALCIUM PANTOTHENATE;ERGOCALCIFEROL;NICOTI [Concomitant]
     Active Substance: VITAMINS

REACTIONS (8)
  - Joint swelling [Not Recovered/Not Resolved]
  - Dental caries [Not Recovered/Not Resolved]
  - No adverse event [Not Recovered/Not Resolved]
  - Inappropriate schedule of product administration [Not Recovered/Not Resolved]
  - Joint stiffness [Not Recovered/Not Resolved]
  - Haemarthrosis [Unknown]
  - Hypertension [Unknown]
  - Haemarthrosis [Not Recovered/Not Resolved]
